FAERS Safety Report 19090849 (Version 4)
Quarter: 2022Q3

REPORT INFORMATION
  Report Type: Report from Study
  Country: KR (occurrence: KR)
  Receive Date: 20210405
  Receipt Date: 20220923
  Transmission Date: 20221026
  Serious: Yes (Hospitalization, Other)
  Sender: FDA-Public Use
  Company Number: KR-TAKEDA-2021TUS018689

PATIENT
  Age: 23 Year
  Sex: Female
  Weight: 50 kg

DRUGS (13)
  1. VEDOLIZUMAB [Suspect]
     Active Substance: VEDOLIZUMAB
     Indication: Crohn^s disease
     Dosage: 300 MILLIGRAM
     Route: 042
     Dates: start: 20201210
  2. PROFA [Concomitant]
     Dosage: 100 MILLILITER, QD
     Route: 042
     Dates: start: 20210322, end: 20210323
  3. PLASMA-LYTE 148 [Concomitant]
     Active Substance: MAGNESIUM CHLORIDE\POTASSIUM CHLORIDE\SODIUM ACETATE\SODIUM CHLORIDE\SODIUM GLUCONATE
     Dosage: 1000 MILLILITER, QD
     Route: 042
     Dates: start: 20210322, end: 20210323
  4. CITOPCIN [CIPROFLOXACIN HYDROCHLORIDE] [Concomitant]
     Dosage: 200 MILLILITER, BID
     Route: 042
     Dates: start: 20210323, end: 20210324
  5. METRONIDAZOLE [Concomitant]
     Active Substance: METRONIDAZOLE
     Dosage: 100 MILLILITER, TID
     Route: 042
     Dates: start: 20210323, end: 20210325
  6. VITAMINS [Concomitant]
     Active Substance: VITAMINS
     Dosage: 100 MILLILITER, QD
     Route: 042
     Dates: start: 20210323, end: 20210323
  7. GASTER [Concomitant]
     Active Substance: FAMOTIDINE
     Dosage: 20 MILLIGRAM
     Route: 042
     Dates: start: 20210325, end: 20210325
  8. GASTER [Concomitant]
     Active Substance: FAMOTIDINE
     Dosage: 20 MILLIGRAM
     Route: 042
     Dates: start: 20210326, end: 20210326
  9. LANSOPRAZOLE [Concomitant]
     Active Substance: LANSOPRAZOLE
     Dosage: 15 MILLIGRAM, QD
     Route: 048
     Dates: start: 20210326, end: 20210407
  10. AZABIO [Concomitant]
     Dosage: 50 MILLIGRAM, QD
     Route: 048
     Dates: start: 20210326, end: 20210407
  11. DISOLRIN [Concomitant]
     Dosage: 40 MILLIGRAM, QD
     Route: 042
     Dates: start: 20210323, end: 20210329
  12. REBAMIPIDE [Concomitant]
     Active Substance: REBAMIPIDE
     Dosage: 100 MILLIGRAM, TID
     Route: 048
     Dates: start: 20210329, end: 20210407
  13. ALMAGATE [Concomitant]
     Active Substance: ALMAGATE
     Dosage: 15 MILLILITER, QD
     Route: 048
     Dates: start: 20210329, end: 20210407

REACTIONS (1)
  - Crohn^s disease [Recovered/Resolved]

NARRATIVE: CASE EVENT DATE: 20210322
